FAERS Safety Report 7156224-6 (Version None)
Quarter: 2010Q4

REPORT INFORMATION
  Report Type: 
  Country: None (occurrence: None)
  Receive Date: 20101214
  Receipt Date: 20101207
  Transmission Date: 20110411
  Serious: Yes (Other)
  Sender: FDA-Public Use
  Company Number: CN-SANOFI-AVENTIS-2010SA073697

PATIENT
  Age: 74 Year
  Sex: Male
  Weight: 47.5 kg

DRUGS (1)
  1. ZOLPIDEM TARTRATE [Suspect]
     Indication: INSOMNIA
     Route: 048
     Dates: start: 20091104, end: 20091104

REACTIONS (6)
  - AGITATION [None]
  - ANTEROGRADE AMNESIA [None]
  - CONFUSIONAL STATE [None]
  - DELIRIUM [None]
  - HALLUCINATION, AUDITORY [None]
  - MENTAL DISORDER [None]
